FAERS Safety Report 25131335 (Version 1)
Quarter: 2025Q1

REPORT INFORMATION
  Report Type: Spontaneous
  Country: US (occurrence: None)
  Receive Date: 20250327
  Receipt Date: 20250327
  Transmission Date: 20250408
  Serious: Yes (Hospitalization)
  Sender: FDA-CTU
  Company Number: None

PATIENT
  Age: 65 Year
  Sex: Male
  Weight: 127.6 kg

DRUGS (4)
  1. VALSARTAN [Suspect]
     Active Substance: VALSARTAN
     Indication: Hypertension
     Dosage: 320 MG DAILY ORAL
     Route: 048
     Dates: start: 20240126, end: 20250326
  2. SULFAMETHOXAZOLE AND TRIMETHOPRIM [Suspect]
     Active Substance: SULFAMETHOXAZOLE\TRIMETHOPRIM
     Indication: Cellulitis
     Dosage: 800160 MG TWICE A DAY ORAL ?
     Route: 048
     Dates: start: 20250320, end: 20250326
  3. VALSARTAN [Concomitant]
     Active Substance: VALSARTAN
  4. Sulfamethoxazole-TMP 800/160 tablet [Concomitant]

REACTIONS (2)
  - Atrial fibrillation [None]
  - Drug interaction [None]

NARRATIVE: CASE EVENT DATE: 20250324
